FAERS Safety Report 5887522-1 (Version None)
Quarter: 2008Q3

REPORT INFORMATION
  Report Type: 
  Country: None (occurrence: None)
  Receive Date: 20080918
  Receipt Date: 20080910
  Transmission Date: 20090109
  Serious: Yes (Other)
  Sender: FDA-Public Use
  Company Number: PHHY2008AU20749

PATIENT
  Age: 17 Year
  Sex: Male

DRUGS (2)
  1. RITALIN [Suspect]
     Indication: ATTENTION DEFICIT/HYPERACTIVITY DISORDER
     Route: 048
  2. DEXAMFETAMINE [Suspect]
     Indication: ABNORMAL BEHAVIOUR

REACTIONS (5)
  - ALCOHOL ABUSE [None]
  - DRUG ABUSE [None]
  - IMPRISONMENT [None]
  - MENTAL RETARDATION [None]
  - SEXUAL ABUSE [None]
